FAERS Safety Report 4333432-0 (Version None)
Quarter: 2004Q1

REPORT INFORMATION
  Report Type: 
  Country: None (occurrence: None)
  Receive Date: 20040330
  Receipt Date: 20040317
  Transmission Date: 20041129
  Serious: Yes (Hospitalization)
  Sender: FDA-Public Use
  Company Number: 205427

PATIENT
  Age: 61 Year
  Sex: Male

DRUGS (11)
  1. RITUXAN [Suspect]
     Indication: NON-HODGKIN'S LYMPHOMA
     Dosage: 375 MG/M2, 1 / WEEK, INTRAVENOUS
     Route: 042
     Dates: start: 20020729, end: 20021203
  2. RITUXAN [Suspect]
     Indication: NON-HODGKIN'S LYMPHOMA
     Dosage: 375 MG/M2, 1 / WEEK, INTRAVENOUS
     Route: 042
     Dates: start: 20030612, end: 20030703
  3. RITUXAN [Suspect]
     Indication: NON-HODGKIN'S LYMPHOMA
     Dosage: 375 MG/M2, 1 / WEEK, INTRAVENOUS
     Route: 042
     Dates: start: 20031028, end: 20031103
  4. RITUXAN [Suspect]
     Indication: NON-HODGKIN'S LYMPHOMA
     Dosage: 375 MG/M2, 1 / WEEK, INTRAVENOUS
     Route: 042
     Dates: start: 20031028, end: 20031103
  5. FLUDARA [Suspect]
     Indication: NON-HODGKIN'S LYMPHOMA
     Dates: start: 20020729, end: 20021203
  6. FLUDARA [Suspect]
     Indication: NON-HODGKIN'S LYMPHOMA
     Dates: start: 20031028, end: 20031103
  7. MULTIVIT W/IRON (IRON NOS, MULTIVITAMIN NOS) [Concomitant]
  8. AMBIEN [Concomitant]
  9. ALLOPURINOL [Concomitant]
  10. PRILOSEC [Concomitant]
  11. ALBUTEROL INHALER (ALBUTEROL, ALBUTEROL SULFATE) [Concomitant]

REACTIONS (2)
  - BRONCHOPULMONARY ASPERGILLOSIS [None]
  - PULMONARY HYPERTENSION [None]
